FAERS Safety Report 12187229 (Version 1)
Quarter: 2016Q1

REPORT INFORMATION
  Report Type: Spontaneous
  Country: US (occurrence: None)
  Receive Date: 20160316
  Receipt Date: 20160316
  Transmission Date: 20160526
  Serious: Yes (Other)
  Sender: FDA-Public Use
  Company Number: None

PATIENT
  Age: 65 Year
  Sex: Female
  Weight: 53.52 kg

DRUGS (4)
  1. FINASTERIDE 5 MG [Suspect]
     Active Substance: FINASTERIDE
     Indication: ALOPECIA
     Dosage: 1 PILL ONCE DAILY
  2. CALCIUM [Concomitant]
     Active Substance: CALCIUM
  3. VITAMIN D AND B COMPLEX [Concomitant]
  4. BIOTIN [Concomitant]
     Active Substance: BIOTIN

REACTIONS (1)
  - Invasive lobular breast carcinoma [None]

NARRATIVE: CASE EVENT DATE: 20150901
